FAERS Safety Report 4262975-3 (Version None)
Quarter: 2004Q1

REPORT INFORMATION
  Report Type: 
  Country: None (occurrence: None)
  Receive Date: 20040102
  Receipt Date: 20040102
  Transmission Date: 20041129
  Serious: No
  Sender: FDA-Public Use
  Company Number: None

PATIENT
  Sex: Female
  Weight: 86.8 kg

DRUGS (1)
  1. GABAPENTIN [Suspect]
     Dosage: 600-900MG PO HS + 300 MG Q8H PRN
     Route: 048

REACTIONS (1)
  - ALOPECIA [None]
